FAERS Safety Report 14996370 (Version 1)
Quarter: 2018Q2

REPORT INFORMATION
  Report Type: Spontaneous
  Country: GB (occurrence: GB)
  Receive Date: 20180611
  Receipt Date: 20180611
  Transmission Date: 20180711
  Serious: Yes (Other)
  Sender: FDA-Public Use
  Company Number: GB-TEVA-2018-GB-904809

PATIENT
  Age: 54 Year
  Sex: Female
  Weight: 60.32 kg

DRUGS (4)
  1. NAPROXEN. [Suspect]
     Active Substance: NAPROXEN
     Indication: EAR PAIN
     Route: 048
     Dates: start: 20180406, end: 20180407
  2. PARACETAMOL [Concomitant]
     Active Substance: ACETAMINOPHEN
     Route: 065
  3. PROBIOTIC [Concomitant]
     Active Substance: PROBIOTICS NOS
     Route: 065
  4. BOOTS IBUPROFEN [Concomitant]
     Route: 065

REACTIONS (4)
  - Anxiety [Unknown]
  - Initial insomnia [Recovered/Resolved]
  - Abdominal pain upper [Unknown]
  - Tachyphrenia [Unknown]

NARRATIVE: CASE EVENT DATE: 20180406
